FAERS Safety Report 15215412 (Version 1)
Quarter: 2018Q3

REPORT INFORMATION
  Report Type: Spontaneous
  Country: FI (occurrence: FI)
  Receive Date: 20180730
  Receipt Date: 20180730
  Transmission Date: 20181010
  Serious: Yes (Hospitalization, Other)
  Sender: FDA-Public Use
  Company Number: FI-SAKK-2018SA196890AA

PATIENT
  Age: 71 Year
  Sex: Female

DRUGS (3)
  1. KLEXANE [Suspect]
     Active Substance: ENOXAPARIN
     Indication: CLOT RETRACTION TIME PROLONGED
     Dosage: UNK, BID
  2. ATORVASTATIN ORION [Concomitant]
     Active Substance: ATORVASTATIN CALCIUM
  3. PANACOD [Concomitant]
     Active Substance: ACETAMINOPHEN\CODEINE PHOSPHATE
     Dosage: UNK
     Dates: start: 20180717

REACTIONS (3)
  - Sarcoidosis [Unknown]
  - Hyperkeratosis [Not Recovered/Not Resolved]
  - Contusion [Not Recovered/Not Resolved]

NARRATIVE: CASE EVENT DATE: 2018
